FAERS Safety Report 5875476-3 (Version None)
Quarter: 2008Q3

REPORT INFORMATION
  Report Type: 
  Country: None (occurrence: None)
  Receive Date: 20080909
  Receipt Date: 20080901
  Transmission Date: 20090109
  Serious: Yes (Hospitalization)
  Sender: FDA-Public Use
  Company Number: ZA-ROCHE-584272

PATIENT
  Age: 14 Year
  Sex: Male
  Weight: 53 kg

DRUGS (3)
  1. ROACUTAN [Suspect]
     Indication: ACNE
     Dosage: STRENGTH AND FORMULATION REPORTED 40 MG/20 MG AND DOSAGE REGIMEN AS DAILY ALTERNAT
     Route: 048
     Dates: start: 20080401, end: 20080801
  2. ROACUTAN [Suspect]
     Dosage: STOP DATE REPORTED AS SEP 2008
     Route: 048
     Dates: start: 20080801
  3. PANAFCORT [Concomitant]
     Route: 048
     Dates: start: 20080601

REACTIONS (4)
  - DIZZINESS [None]
  - PARAESTHESIA [None]
  - PERIPHERAL PARALYSIS [None]
  - VISION BLURRED [None]
